FAERS Safety Report 10958828 (Version 2)
Quarter: 2015Q2

REPORT INFORMATION
  Report Type: Spontaneous
  Country: US (occurrence: US)
  Receive Date: 20150327
  Receipt Date: 20150524
  Transmission Date: 20150821
  Serious: No
  Sender: FDA-Public Use
  Company Number: US-JNJFOC-20140602362

PATIENT
  Sex: Female

DRUGS (1)
  1. DURAGESIC [Suspect]
     Active Substance: FENTANYL
     Indication: PRODUCT USED FOR UNKNOWN INDICATION
     Dosage: 100 UG/HR + 50 UG/HR
     Route: 062

REACTIONS (3)
  - Product quality issue [Unknown]
  - Product quality issue [Unknown]
  - Pain [Unknown]

NARRATIVE: CASE EVENT DATE: 2014
